FAERS Safety Report 10236083 (Version 1)
Quarter: 2014Q1

REPORT INFORMATION
  Report Type: Spontaneous
  Country: US (occurrence: None)
  Receive Date: 20140306
  Receipt Date: 20140306
  Transmission Date: 20141002
  Serious: Yes (Hospitalization)
  Sender: FDA-Public Use
  Company Number: 163-21880-13111455

PATIENT
  Age: 59 Year
  Sex: Female
  Weight: 54 kg

DRUGS (6)
  1. REVLIMID (LENALIDOMIDE) (25 MILLIGRAM, CAPSULES) [Suspect]
     Indication: PLASMA CELL MYELOMA
     Dosage: 25 MG, 14 IN 14 D, PO
     Route: 048
     Dates: start: 20120906
  2. CENTRUM (CENTRUM) (TABLETS) [Concomitant]
  3. DEXAMETHASONE (DEXAMETHASONE) [Concomitant]
  4. CIPRO (CIPROFLOXACIN) [Concomitant]
  5. ZOFRAN (ONDANSETRON HYDROCHLORIDE) [Concomitant]
  6. OMEGA 3 FISH OIL (FISH OIL) [Concomitant]

REACTIONS (6)
  - Pneumonia [None]
  - Pruritus [None]
  - Fatigue [None]
  - Increased tendency to bruise [None]
  - Epistaxis [None]
  - Lethargy [None]
